FAERS Safety Report 16208235 (Version 1)
Quarter: 2019Q2

REPORT INFORMATION
  Report Type: Spontaneous
  Country: CA (occurrence: CA)
  Receive Date: 20190417
  Receipt Date: 20190417
  Transmission Date: 20190711
  Serious: Yes (Other)
  Sender: FDA-Public Use
  Company Number: CA-PFIZER INC-2019158369

PATIENT
  Age: 32 Year
  Sex: Female
  Weight: 117 kg

DRUGS (3)
  1. CORTIMENT [HYDROCORTISONE] [Suspect]
     Active Substance: HYDROCORTISONE
     Indication: COLITIS ULCERATIVE
     Dosage: UNK
     Route: 048
  2. IMURAN [Concomitant]
     Active Substance: AZATHIOPRINE
     Dosage: 100 MG, 1X/DAY
     Route: 065
  3. PROPOFOL. [Suspect]
     Active Substance: PROPOFOL
     Indication: SIGMOIDOSCOPY
     Dosage: UNK
     Route: 042

REACTIONS (3)
  - Hypersensitivity [Unknown]
  - Vulval abscess [Unknown]
  - Colitis ulcerative [Unknown]
